FAERS Safety Report 10144502 (Version 1)
Quarter: 2014Q2

REPORT INFORMATION
  Report Type: Spontaneous
  Country: US (occurrence: US)
  Receive Date: 20140430
  Receipt Date: 20140430
  Transmission Date: 20141212
  Serious: No
  Sender: FDA-Public Use
  Company Number: US-GILEAD-2014-0101128

PATIENT
  Sex: Female

DRUGS (2)
  1. LETAIRIS [Suspect]
     Indication: PRODUCT USED FOR UNKNOWN INDICATION
     Dosage: 5 MG, QD
     Route: 065
     Dates: start: 20100526
  2. VENTAVIS [Concomitant]

REACTIONS (5)
  - Back disorder [Unknown]
  - Restlessness [Unknown]
  - Self-medication [Unknown]
  - Dyspnoea [Unknown]
  - Accidental overdose [Unknown]
